FAERS Safety Report 5843713-7 (Version None)
Quarter: 2008Q3

REPORT INFORMATION
  Report Type: 
  Country: None (occurrence: None)
  Receive Date: 20080813
  Receipt Date: 20080627
  Transmission Date: 20090109
  Serious: No
  Sender: FDA-Public Use
  Company Number: US-BRISTOL-MYERS SQUIBB COMPANY-14162143

PATIENT
  Age: 74 Year
  Sex: Female

DRUGS (1)
  1. IXEMPRA KIT [Suspect]
     Indication: BREAST CANCER METASTATIC
     Route: 042
     Dates: start: 20080401, end: 20080401

REACTIONS (5)
  - ABDOMINAL PAIN UPPER [None]
  - BONE PAIN [None]
  - FATIGUE [None]
  - NAUSEA [None]
  - RETCHING [None]
